FAERS Safety Report 12161536 (Version 1)
Quarter: 2016Q1

REPORT INFORMATION
  Report Type: Spontaneous
  Country: MX (occurrence: MX)
  Receive Date: 20160309
  Receipt Date: 20160309
  Transmission Date: 20160526
  Serious: Yes (Other)
  Sender: FDA-Public Use
  Company Number: MX-ROCHE-1722439

PATIENT
  Age: 35 Year
  Sex: Male
  Weight: 78 kg

DRUGS (1)
  1. TAMIFLU [Suspect]
     Active Substance: OSELTAMIVIR PHOSPHATE
     Indication: INFLUENZA
     Route: 048
     Dates: start: 20160219, end: 20160223

REACTIONS (4)
  - Anxiety [Recovered/Resolved]
  - Abnormal dreams [Recovered/Resolved]
  - Hallucination [Recovered/Resolved]
  - Tachycardia [Recovered/Resolved]
